FAERS Safety Report 12946825 (Version 1)
Quarter: 2016Q4

REPORT INFORMATION
  Report Type: Spontaneous
  Country: US (occurrence: US)
  Receive Date: 20161116
  Receipt Date: 20161116
  Transmission Date: 20170207
  Serious: Yes (Other)
  Sender: FDA-Public Use
  Company Number: US-GLAXOSMITHKLINE-US2016168946

PATIENT
  Age: 67 Year
  Sex: Male

DRUGS (2)
  1. VOLTAREN [Suspect]
     Active Substance: DICLOFENAC SODIUM
     Indication: ARTHRALGIA
     Dosage: UNK
     Dates: start: 2011
  2. VOLTAREN [Suspect]
     Active Substance: DICLOFENAC SODIUM
     Indication: MUSCULOSKELETAL PAIN

REACTIONS (13)
  - Knee arthroplasty [Unknown]
  - Neck surgery [Unknown]
  - Fall [Unknown]
  - Spondylolisthesis [Unknown]
  - Intentional product use issue [Unknown]
  - Expired product administered [Unknown]
  - Shoulder arthroplasty [Unknown]
  - Nervous system disorder [Unknown]
  - Vocal cord disorder [Not Recovered/Not Resolved]
  - Arthritis [Unknown]
  - Inappropriate schedule of drug administration [Unknown]
  - Drug administered at inappropriate site [Unknown]
  - Product use issue [Unknown]

NARRATIVE: CASE EVENT DATE: 2011
